FAERS Safety Report 23648824 (Version 2)
Quarter: 2024Q2

REPORT INFORMATION
  Report Type: Spontaneous
  Country: US (occurrence: US)
  Receive Date: 20240319
  Receipt Date: 20240405
  Transmission Date: 20240716
  Serious: Yes (Other)
  Sender: FDA-Public Use
  Company Number: US-009507513-2403USA005771

PATIENT
  Age: 60 Year
  Sex: Male
  Weight: 107.03 kg

DRUGS (5)
  1. DELSTRIGO [Suspect]
     Active Substance: DORAVIRINE\LAMIVUDINE\TENOFOVIR DISOPROXIL FUMARATE
     Dosage: UNK
     Route: 048
     Dates: start: 2021
  2. HYDROXYCHLOROQUINE DIPHOSPHATE [Suspect]
     Active Substance: HYDROXYCHLOROQUINE DIPHOSPHATE
     Indication: Arthritis
     Dosage: UNK, QD
     Route: 048
     Dates: start: 2024, end: 20240315
  3. SERTRALINE [Concomitant]
     Active Substance: SERTRALINE HYDROCHLORIDE
     Dosage: UNK
     Route: 030
     Dates: start: 2022
  4. LOSARTAN [Concomitant]
     Active Substance: LOSARTAN
     Dosage: UNK, QD
     Route: 048
     Dates: start: 2022
  5. ATORVASTATIN [Concomitant]
     Active Substance: ATORVASTATIN
     Dosage: UNK, QD
     Route: 048
     Dates: start: 2022

REACTIONS (3)
  - Rheumatoid arthritis [Unknown]
  - CD4 lymphocytes decreased [Recovered/Resolved with Sequelae]
  - Hepatitis C antibody positive [Unknown]

NARRATIVE: CASE EVENT DATE: 20240101
